FAERS Safety Report 6288474-5 (Version None)
Quarter: 2009Q3

REPORT INFORMATION
  Report Type: 
  Country: None (occurrence: None)
  Receive Date: 20090727
  Receipt Date: 20090716
  Transmission Date: 20100115
  Serious: Yes (Death, Hospitalization)
  Sender: FDA-Public Use
  Company Number: RENA-1000513

PATIENT
  Age: 80 Year
  Sex: Female

DRUGS (3)
  1. RENAGEL [Suspect]
     Indication: HYPERPHOSPHATAEMIA
     Dosage: 24 G, QD, ORAL
     Route: 048
     Dates: start: 20081015, end: 20081209
  2. ENALAPRIL MALEATE AND HYDROCHLOROTHIAZIDE [Concomitant]
  3. PLAVIX [Concomitant]

REACTIONS (1)
  - ACUTE PULMONARY OEDEMA [None]
